FAERS Safety Report 4305198-1 (Version None)
Quarter: 2004Q1

REPORT INFORMATION
  Report Type: 
  Country: None (occurrence: None)
  Receive Date: 20040226
  Receipt Date: 20040216
  Transmission Date: 20041129
  Serious: Yes (Hospitalization)
  Sender: FDA-Public Use
  Company Number: GB-GLAXOSMITHKLINE-B0323849A

PATIENT
  Age: 38 Year
  Sex: Female

DRUGS (2)
  1. LITHIUM CARBONATE [Suspect]
     Route: 065
  2. CLOZARIL [Suspect]
     Indication: SCHIZOPHRENIA
     Dosage: 400MG PER DAY
     Route: 048
     Dates: start: 20020122, end: 20040127

REACTIONS (3)
  - CARDIOMEGALY [None]
  - DRUG INTERACTION [None]
  - DRUG LEVEL INCREASED [None]
